FAERS Safety Report 9100374 (Version 1)
Quarter: 2013Q1

REPORT INFORMATION
  Report Type: Spontaneous
  Country: US (occurrence: US)
  Receive Date: 20130215
  Receipt Date: 20130215
  Transmission Date: 20140127
  Serious: Yes (Hospitalization, Other)
  Sender: FDA-Public Use
  Company Number: US-ROXANE LABORATORIES, INC.-2013-RO-00232RO

PATIENT
  Age: 57 Year
  Sex: Female

DRUGS (2)
  1. DEXAMETHASONE [Suspect]
     Indication: CONVULSION PROPHYLAXIS
  2. PHENYTOIN [Suspect]
     Indication: CONVULSION PROPHYLAXIS

REACTIONS (5)
  - Thrombocytopenia [Recovered/Resolved]
  - Convulsion [Recovered/Resolved]
  - Postictal state [Recovered/Resolved]
  - Mental status changes [Recovered/Resolved]
  - Drug eruption [Unknown]
